FAERS Safety Report 4582210-6 (Version None)
Quarter: 2005Q1

REPORT INFORMATION
  Report Type: 
  Country: None (occurrence: None)
  Receive Date: 20050210
  Receipt Date: 20050210
  Transmission Date: 20050727
  Serious: Yes (Other)
  Sender: FDA-Public Use
  Company Number: None

PATIENT
  Age: 39 Year
  Sex: Female

DRUGS (3)
  1. HUMALOG [Suspect]
     Indication: DIABETES MELLITUS
     Dosage: USE AS DIRECTED USING INSULIN PUMP
     Dates: start: 20010101
  2. DISETRONIC INSULIN PUMP [Concomitant]
  3. ONE TOUCH ULTRA GLUCOSE MONITOR [Concomitant]

REACTIONS (1)
  - BLOOD GLUCOSE INCREASED [None]
